FAERS Safety Report 6250582-2 (Version None)
Quarter: 2009Q2

REPORT INFORMATION
  Report Type: 
  Country: None (occurrence: None)
  Receive Date: 20090630
  Receipt Date: 20090618
  Transmission Date: 20091009
  Serious: Yes (Other)
  Sender: FDA-Public Use
  Company Number: US-PFIZER INC-2004114245

PATIENT
  Sex: Female
  Weight: 56 kg

DRUGS (7)
  1. PROVERA [Suspect]
     Indication: HORMONE REPLACEMENT THERAPY
     Dosage: UNK MG, UNK
     Route: 048
     Dates: start: 19860101, end: 19960101
  2. PREMARIN [Suspect]
     Indication: HORMONE REPLACEMENT THERAPY
     Dosage: UNK
     Route: 067
     Dates: start: 19840101, end: 19860101
  3. PREMARIN [Suspect]
     Indication: VULVOVAGINAL DRYNESS
  4. PREMPRO [Suspect]
     Indication: HORMONE REPLACEMENT THERAPY
     Dosage: 0.625/ 2.5MG
     Dates: start: 19960701, end: 20000201
  5. PREMARIN [Suspect]
     Dosage: 0.625 MG, UNK
     Dates: start: 19860101, end: 19960101
  6. ASPIRIN [Concomitant]
     Indication: CARDIAC DISORDER
     Dosage: 0.325 MG, UNK
     Dates: start: 19850101, end: 20010809
  7. LANOXIN [Concomitant]
     Indication: ARRHYTHMIA
     Dosage: 0.125 MG, UNK
     Dates: start: 19850101, end: 20010809

REACTIONS (1)
  - BREAST CANCER FEMALE [None]
